FAERS Safety Report 23246196 (Version 1)
Quarter: 2023Q4

REPORT INFORMATION
  Report Type: Spontaneous
  Country: FR (occurrence: None)
  Receive Date: 20231130
  Receipt Date: 20231130
  Transmission Date: 20240109
  Serious: Yes (Other)
  Sender: FDA-Public Use
  Company Number: 2023A265787

PATIENT
  Age: 49 Year
  Sex: Female
  Weight: 95 kg

DRUGS (5)
  1. OLAPARIB [Suspect]
     Active Substance: OLAPARIB
     Indication: Product used for unknown indication
     Dosage: 1 PRISE
     Dates: start: 20230118, end: 20230118
  2. OMEPRAZOLE [Concomitant]
     Active Substance: OMEPRAZOLE
  3. LETROZOLE [Concomitant]
     Active Substance: LETROZOLE
  4. DECAPEPTYL [Concomitant]
  5. LEVOTHYROXINE [Concomitant]
     Active Substance: LEVOTHYROXINE

REACTIONS (5)
  - Flushing [Recovered/Resolved]
  - Urticaria [Recovered/Resolved]
  - Face oedema [Recovered/Resolved]
  - Feeling hot [Recovered/Resolved]
  - Oral discomfort [Recovered/Resolved]

NARRATIVE: CASE EVENT DATE: 20230218
